FAERS Safety Report 5759367-4 (Version None)
Quarter: 2008Q2

REPORT INFORMATION
  Report Type: 
  Country: None (occurrence: None)
  Receive Date: 20080602
  Receipt Date: 20080514
  Transmission Date: 20081010
  Serious: Yes (Hospitalization)
  Sender: FDA-Public Use
  Company Number: DSA_31886_2008

PATIENT
  Sex: Female

DRUGS (2)
  1. TEMESTA /00273201/ (TEMESTA - LORAZEPAM) (NOT SPECIFIED) [Suspect]
     Indication: AGGRESSION
     Dosage: (2.5 MG QD SUBLINGUAL)
     Route: 060
     Dates: start: 20060918, end: 20060918
  2. ZYPREXA [Suspect]
     Indication: AGGRESSION
     Dosage: (10 MG QD ORAL)
     Route: 048
     Dates: start: 20060918, end: 20060918

REACTIONS (4)
  - FALL [None]
  - PERIORBITAL HAEMATOMA [None]
  - PUPILLARY LIGHT REFLEX TESTS ABNORMAL [None]
  - WOUND [None]
